FAERS Safety Report 11945214 (Version 5)
Quarter: 2016Q1

REPORT INFORMATION
  Report Type: Report from Study
  Country: BR (occurrence: BR)
  Receive Date: 20160125
  Receipt Date: 20160307
  Transmission Date: 20160526
  Serious: Yes (Life-Threatening, Hospitalization)
  Sender: FDA-Public Use
  Company Number: BR-JNJFOC-20160107542

PATIENT
  Age: 59 Year
  Sex: Male

DRUGS (1)
  1. IBRUTINIB [Suspect]
     Active Substance: IBRUTINIB
     Indication: CHRONIC LYMPHOCYTIC LEUKAEMIA
     Route: 048
     Dates: start: 20151027, end: 20160103

REACTIONS (2)
  - Intestinal haemorrhage [Recovered/Resolved with Sequelae]
  - Enterocolitis infectious [Not Recovered/Not Resolved]

NARRATIVE: CASE EVENT DATE: 20151231
